FAERS Safety Report 18032733 (Version 1)
Quarter: 2020Q3

REPORT INFORMATION
  Report Type: Spontaneous
  Country: FR (occurrence: FR)
  Receive Date: 20200716
  Receipt Date: 20200716
  Transmission Date: 20201103
  Serious: Yes (Hospitalization)
  Sender: FDA-Public Use
  Company Number: FR-ROCHE-2642982

PATIENT
  Age: 73 Year
  Sex: Male
  Weight: 83 kg

DRUGS (7)
  1. ENDOXAN [Suspect]
     Active Substance: CYCLOPHOSPHAMIDE
     Indication: CHRONIC LYMPHOCYTIC LEUKAEMIA
     Route: 042
     Dates: start: 20200408, end: 20200525
  2. PERMIXON [Concomitant]
     Active Substance: HERBALS\SAW PALMETTO
  3. MABTHERA [Suspect]
     Active Substance: RITUXIMAB
     Indication: CHRONIC LYMPHOCYTIC LEUKAEMIA
     Route: 042
     Dates: start: 20200408, end: 20200525
  4. EZETROL [Concomitant]
     Active Substance: EZETIMIBE
  5. VALACICLOVIR [Concomitant]
     Active Substance: VALACYCLOVIR HYDROCHLORIDE
  6. ZESTRIL [Concomitant]
     Active Substance: LISINOPRIL
  7. BACTRIM [Concomitant]
     Active Substance: SULFAMETHOXAZOLE\TRIMETHOPRIM

REACTIONS (5)
  - Suspected COVID-19 [Recovered/Resolved]
  - Arthralgia [Recovered/Resolved]
  - Abdominal pain upper [Recovered/Resolved]
  - Back pain [Recovered/Resolved]
  - Purpura [Recovered/Resolved]

NARRATIVE: CASE EVENT DATE: 20200425
